FAERS Safety Report 26009684 (Version 1)
Quarter: 2025Q4

REPORT INFORMATION
  Report Type: Report from Study
  Country: US (occurrence: US)
  Receive Date: 20251107
  Receipt Date: 20251107
  Transmission Date: 20260117
  Serious: Yes (Other)
  Sender: ALEXION PHARMACEUTICALS
  Company Number: US-ASTRAZENECA-202510NAM031891US

PATIENT
  Age: 46 Year
  Sex: Female

DRUGS (1)
  1. STRENSIQ [Suspect]
     Active Substance: ASFOTASE ALFA
     Indication: Enzyme level abnormal
     Dosage: 2 MILLIGRAM/KILOGRAM, TID
     Route: 065

REACTIONS (13)
  - Transient ischaemic attack [Unknown]
  - Insomnia [Unknown]
  - Bone pain [Unknown]
  - Fatigue [Unknown]
  - Tachycardia [Unknown]
  - Palpitations [Unknown]
  - Decreased appetite [Unknown]
  - Constipation [Unknown]
  - Temperature intolerance [Unknown]
  - Dry skin [Unknown]
  - Alopecia [Unknown]
  - Eye inflammation [Unknown]
  - Rathke^s cleft cyst [Unknown]

NARRATIVE: CASE EVENT DATE: 20250301
